FAERS Safety Report 10722714 (Version 5)
Quarter: 2015Q3

REPORT INFORMATION
  Report Type: Spontaneous
  Country: RU (occurrence: RU)
  Receive Date: 20150120
  Receipt Date: 20150727
  Transmission Date: 20151125
  Serious: Yes (Other)
  Sender: FDA-Public Use
  Company Number: RU-GLAXOSMITHKLINE-B1006356A

PATIENT
  Sex: Male

DRUGS (7)
  1. STOCRIN [Suspect]
     Active Substance: EFAVIRENZ
     Indication: HIV INFECTION
     Dosage: UNK, 1D
     Route: 065
     Dates: start: 201312
  2. ZIAGEN [Suspect]
     Active Substance: ABACAVIR SULFATE
     Indication: HIV INFECTION
     Dosage: UNK, 1D
     Route: 065
     Dates: start: 201312
  3. EFAVIRENZ [Concomitant]
     Active Substance: EFAVIRENZ
  4. GAVISCON [Suspect]
     Active Substance: ALUMINUM HYDROXIDE\MAGNESIUM CARBONATE
     Indication: DUODENOGASTRIC REFLUX
     Dosage: 1 DF, TID
  5. LAMIVUDINE-HIV [Suspect]
     Active Substance: LAMIVUDINE
     Indication: HIV INFECTION
     Dosage: UNK, 1D
     Route: 065
     Dates: start: 201312
  6. ABACAVIR. [Concomitant]
     Active Substance: ABACAVIR
  7. KIVEXA [Suspect]
     Active Substance: ABACAVIR SULFATE\LAMIVUDINE
     Indication: HIV INFECTION

REACTIONS (33)
  - Pyrexia [Unknown]
  - Influenza like illness [Unknown]
  - Tongue coated [Unknown]
  - Erosive oesophagitis [Unknown]
  - Gastritis haemorrhagic [Recovering/Resolving]
  - Hyperchlorhydria [Recovering/Resolving]
  - Duodenitis [Recovering/Resolving]
  - Neurosis [Unknown]
  - Musculoskeletal discomfort [Unknown]
  - Pharyngeal erythema [Unknown]
  - Chronic gastritis [Recovering/Resolving]
  - Asthenia [Unknown]
  - Irritability [Unknown]
  - Headache [Unknown]
  - Initial insomnia [Not Recovered/Not Resolved]
  - Respiratory tract infection viral [Unknown]
  - Tonsillar inflammation [Unknown]
  - Chest pain [Unknown]
  - Pharyngeal erosion [Recovered/Resolved]
  - Nasopharyngitis [Unknown]
  - Rhinorrhoea [Not Recovered/Not Resolved]
  - Gastric polyps [Unknown]
  - Pharyngeal disorder [Unknown]
  - Lymph node pain [Unknown]
  - Nasal obstruction [Unknown]
  - Nail discolouration [Unknown]
  - Hiatus hernia [Recovering/Resolving]
  - Nervousness [Unknown]
  - Oropharyngeal pain [Recovered/Resolved]
  - Gastrooesophageal reflux disease [Unknown]
  - Head discomfort [Unknown]
  - Pharyngitis [Unknown]
  - Gastric disorder [Unknown]

NARRATIVE: CASE EVENT DATE: 20140823
